FAERS Safety Report 8884021 (Version 3)
Quarter: 2012Q4

REPORT INFORMATION
  Report Type: 
  Country: US (occurrence: US)
  Receive Date: 20121104
  Receipt Date: 20121127
  Transmission Date: 20130627
  Serious: No
  Sender: FDA-Public Use
  Company Number: US-ASTRAZENECA-2012SE81398

PATIENT
  Age: 65 Year
  Sex: Female

DRUGS (3)
  1. NEXIUM [Suspect]
     Route: 048
  2. PRILOSEC OTC [Suspect]
     Route: 048
  3. VENTOLIN HFA [Concomitant]
     Indication: ASTHMA

REACTIONS (5)
  - Gastrooesophageal reflux disease [Unknown]
  - Adverse event [Unknown]
  - Wheezing [Unknown]
  - Intentional drug misuse [Unknown]
  - Drug ineffective [Unknown]
